FAERS Safety Report 11539834 (Version 17)
Quarter: 2016Q4

REPORT INFORMATION
  Report Type: Spontaneous
  Country: US (occurrence: US)
  Receive Date: 20150923
  Receipt Date: 20161006
  Transmission Date: 20170206
  Serious: Yes (Hospitalization, Other)
  Sender: FDA-Public Use
  Company Number: US-PFIZER INC-2015299193

PATIENT
  Age: 73 Year
  Sex: Male
  Weight: 111 kg

DRUGS (19)
  1. SUTENT [Suspect]
     Active Substance: SUNITINIB MALATE
     Dosage: 37.5 MG, ALTERNATE DAY
  2. SUTENT [Suspect]
     Active Substance: SUNITINIB MALATE
     Indication: METASTATIC RENAL CELL CARCINOMA
     Dosage: 50 MG, 28 DAYS ON/14 DAYS OFF
     Dates: start: 20150818, end: 20150828
  3. SUTENT [Suspect]
     Active Substance: SUNITINIB MALATE
     Dosage: 12.5 MG, 28 DAYS ON AND 14 DAYS OFF
     Dates: start: 201509, end: 201509
  4. SUTENT [Suspect]
     Active Substance: SUNITINIB MALATE
     Dosage: 25 MG, CYCLIC (2 WEEKS ON/1 WEEK OFF)
  5. SUTENT [Suspect]
     Active Substance: SUNITINIB MALATE
     Dosage: UNK, ALTERNATE DAY (37.5MG ALT 25MG DAILY - 2 WEEKS ON/1 WEEK OFF)
  6. SUTENT [Suspect]
     Active Substance: SUNITINIB MALATE
     Dosage: ALTERNATING 25 MG AND 37.5 MG EACH DAY
     Dates: start: 2015
  7. SUTENT [Suspect]
     Active Substance: SUNITINIB MALATE
     Dosage: 37.5 MG, CYCLIC (FOR 2 WEEKS ON / 1 WEEK OFF. )
  8. SUTENT [Suspect]
     Active Substance: SUNITINIB MALATE
     Dosage: CYCLIC (2 WEEKS OFF AND THEN 1 WEEK ON)
  9. SUTENT [Suspect]
     Active Substance: SUNITINIB MALATE
     Dosage: 25 MG, ALTERNATE DAY
  10. SUTENT [Suspect]
     Active Substance: SUNITINIB MALATE
     Dosage: ALTERNATE DAY, (37.5MG ALT 25MG DAILY -2 WEEKS ON/1 WEEK OFF)
     Dates: start: 20160105, end: 20160426
  11. DESONIDE. [Concomitant]
     Active Substance: DESONIDE
     Dosage: UNK
  12. SUTENT [Suspect]
     Active Substance: SUNITINIB MALATE
     Dosage: 25 MG, CYCLIC (DAILY, 28 DAYS ON/14 DAYS OFF)
  13. ZOMETA [Concomitant]
     Active Substance: ZOLEDRONIC ACID
     Dosage: UNK
  14. CLARITIN [Concomitant]
     Active Substance: LORATADINE
     Dosage: UNK
  15. SUTENT [Suspect]
     Active Substance: SUNITINIB MALATE
     Dosage: 25 MG, CYCLIC (28 DAYS ON/14 DAYS OFF)
     Dates: start: 20150917
  16. SUTENT [Suspect]
     Active Substance: SUNITINIB MALATE
     Dosage: UNK, ALTERNATE DAY, (12.5 MG ALTERNATING WITH 25 MG )
     Dates: start: 20160105, end: 20160426
  17. SUTENT [Suspect]
     Active Substance: SUNITINIB MALATE
     Dosage: 37.5 MG, CYCLIC (14 DAYS ON AND 7 DAYS OFF)
  18. SUTENT [Suspect]
     Active Substance: SUNITINIB MALATE
     Dosage: 37.5MG ALT 25MG DAILY -2 WEEKS ON/1 WEEK OFF
     Dates: start: 20160105, end: 20160514
  19. METOPROLOL. [Concomitant]
     Active Substance: METOPROLOL
     Dosage: UNK

REACTIONS (42)
  - Nausea [Recovered/Resolved]
  - Pain in extremity [Unknown]
  - Scrotal inflammation [Recovering/Resolving]
  - Hyperkeratosis [Not Recovered/Not Resolved]
  - Platelet count decreased [Unknown]
  - Blood glucose decreased [Unknown]
  - Genital rash [Recovering/Resolving]
  - Red blood cell count decreased [Unknown]
  - Streptococcal infection [Unknown]
  - Spinal disorder [Unknown]
  - Memory impairment [Unknown]
  - Faeces discoloured [Recovered/Resolved]
  - Splenomegaly [Unknown]
  - Lymphadenopathy [Unknown]
  - Hypertension [Unknown]
  - Blood blister [Unknown]
  - Genital burning sensation [Unknown]
  - Impaired healing [Unknown]
  - Vomiting [Recovered/Resolved]
  - Heart rate increased [Unknown]
  - Pruritus genital [Unknown]
  - Abdominal pain [Unknown]
  - Diabetic neuropathy [Recovered/Resolved]
  - Constipation [Unknown]
  - White blood cell count decreased [Unknown]
  - Fungal infection [Recovered/Resolved]
  - Full blood count abnormal [Unknown]
  - Venous occlusion [Recovered/Resolved]
  - Diarrhoea [Recovered/Resolved]
  - Haemorrhage [Recovered/Resolved]
  - Haematochezia [Unknown]
  - Scrotal swelling [Recovering/Resolving]
  - Asthenia [Unknown]
  - Rash [Not Recovered/Not Resolved]
  - Rotator cuff syndrome [Unknown]
  - Fatigue [Not Recovered/Not Resolved]
  - Liver disorder [Recovered/Resolved]
  - Pain [Unknown]
  - Abdominal pain upper [Unknown]
  - Pruritus [Not Recovered/Not Resolved]
  - Scrotal pain [Unknown]
  - Muscular weakness [Unknown]

NARRATIVE: CASE EVENT DATE: 201508
